FAERS Safety Report 8151023-0 (Version None)
Quarter: 2012Q1

REPORT INFORMATION
  Report Type: 
  Country: None (occurrence: None)
  Receive Date: 20120220
  Receipt Date: 20120210
  Transmission Date: 20120608
  Serious: Yes (Other)
  Sender: FDA-Public Use
  Company Number: BR-ABBOTT-10P-020-0637993-00

PATIENT
  Sex: Female
  Weight: 72 kg

DRUGS (12)
  1. ESOMEPRAZOLE MAGNESIUM [Concomitant]
     Indication: GASTRIC DISORDER
     Route: 048
  2. NEXIUM [Concomitant]
     Indication: GASTRIC DISORDER
  3. NEXIUM [Concomitant]
     Indication: PROPHYLAXIS
  4. HUMIRA [Suspect]
     Indication: RHEUMATOID ARTHRITIS
     Route: 058
     Dates: end: 20100201
  5. ATENOLOL [Concomitant]
     Indication: HYPERTENSION
     Route: 048
  6. ALPRAZOLAM [Concomitant]
     Indication: DEPRESSION
     Dosage: IF WAKE UP AT NIGHT
     Route: 048
  7. ALPRAZOLAM [Concomitant]
     Indication: DEPRESSION
     Route: 048
  8. ATENOLOL [Concomitant]
     Indication: ARRHYTHMIA
  9. NIFEDIPINE [Concomitant]
     Indication: HYPERTENSION
     Route: 048
  10. HUMIRA [Suspect]
  11. ALPRAZOLAM [Concomitant]
     Indication: ANXIOLYTIC THERAPY
     Route: 048
  12. NIFEDIPINE [Concomitant]
     Indication: CARDIOVASCULAR EVENT PROPHYLAXIS

REACTIONS (14)
  - RASH MACULAR [None]
  - WHEEZING [None]
  - LIMB INJURY [None]
  - OROPHARYNGEAL PAIN [None]
  - MALAISE [None]
  - ALOPECIA [None]
  - COUGH [None]
  - INFLUENZA [None]
  - RHINITIS [None]
  - CATARACT [None]
  - PYREXIA [None]
  - SKIN DISCOLOURATION [None]
  - WOUND HAEMORRHAGE [None]
  - DENGUE FEVER [None]
